FAERS Safety Report 11127795 (Version 2)
Quarter: 2015Q2

REPORT INFORMATION
  Report Type: Report from Study
  Country: US (occurrence: US)
  Receive Date: 20150521
  Receipt Date: 20150525
  Transmission Date: 20150821
  Serious: No
  Sender: FDA-Public Use
  Company Number: US-BIOGENIDEC-2015BI066185

PATIENT
  Age: 45 Year
  Sex: Female
  Weight: 72 kg

DRUGS (10)
  1. CITALOPRAM [Concomitant]
     Active Substance: CITALOPRAM HYDROBROMIDE
     Dates: start: 2010
  2. AMPYRA [Concomitant]
     Active Substance: DALFAMPRIDINE
     Indication: MULTIPLE SCLEROSIS
     Route: 048
     Dates: start: 20150421
  3. NORTRIPTYLINE [Concomitant]
     Active Substance: NORTRIPTYLINE
     Dates: start: 2010
  4. VITAMIN D [Concomitant]
     Active Substance: CHOLECALCIFEROL
  5. TECFIDERA [Suspect]
     Active Substance: DIMETHYL FUMARATE
     Indication: MULTIPLE SCLEROSIS
     Dates: start: 20130521, end: 20130619
  6. LOPERAMIDE [Concomitant]
     Active Substance: LOPERAMIDE
  7. FISH OIL WITH VITAMIN D3 [Concomitant]
     Dates: start: 2013
  8. TECFIDERA [Suspect]
     Active Substance: DIMETHYL FUMARATE
     Indication: MULTIPLE SCLEROSIS
     Route: 048
     Dates: start: 20130620
  9. SIMVASTATIN. [Concomitant]
     Active Substance: SIMVASTATIN
     Dates: start: 2012
  10. VITAMIN D3 [Concomitant]
     Active Substance: CHOLECALCIFEROL
     Dates: start: 2013

REACTIONS (4)
  - Retinal disorder [Recovered/Resolved]
  - Underdose [Recovered/Resolved]
  - Foot fracture [Recovered/Resolved]
  - Nuclear magnetic resonance imaging abnormal [Not Recovered/Not Resolved]

NARRATIVE: CASE EVENT DATE: 20130521
